FAERS Safety Report 10166976 (Version 1)
Quarter: 2014Q2

REPORT INFORMATION
  Report Type: Spontaneous
  Country: US (occurrence: US)
  Receive Date: 20140512
  Receipt Date: 20140512
  Transmission Date: 20141212
  Serious: No
  Sender: FDA-Public Use
  Company Number: US-PFIZER INC-2014129684

PATIENT
  Age: 36 Year
  Sex: Female
  Weight: 54.4 kg

DRUGS (1)
  1. PRISTIQ [Suspect]
     Indication: MAJOR DEPRESSION
     Dosage: 100 MG, DAILY
     Route: 048

REACTIONS (2)
  - Hand-eye coordination impaired [Not Recovered/Not Resolved]
  - Neurological examination abnormal [Not Recovered/Not Resolved]
